FAERS Safety Report 11170790 (Version 1)
Quarter: 2015Q2

REPORT INFORMATION
  Report Type: Spontaneous
  Country: US (occurrence: None)
  Receive Date: 20150605
  Receipt Date: 20150605
  Transmission Date: 20150821
  Serious: No
  Sender: FDA-Public Use
  Company Number: None

PATIENT
  Age: 48 Year
  Sex: Female

DRUGS (6)
  1. ZOFRAN [Concomitant]
     Active Substance: ONDANSETRON HYDROCHLORIDE
  2. POTASSIUM CHLORIDE MICRO-DISPERSIBLE [Concomitant]
     Active Substance: POTASSIUM CHLORIDE
  3. FISH OIL [Concomitant]
     Active Substance: FISH OIL
  4. PERCOCET [Concomitant]
     Active Substance: ACETAMINOPHEN\OXYCODONE HYDROCHLORIDE
  5. SPRYCEL [Suspect]
     Active Substance: DASATINIB
     Indication: CHRONIC MYELOID LEUKAEMIA
     Route: 048
     Dates: start: 20140702, end: 20150331
  6. TYLENOL [Concomitant]
     Active Substance: ACETAMINOPHEN

REACTIONS (4)
  - Tinnitus [None]
  - Vertigo [None]
  - Swelling [None]
  - Night sweats [None]

NARRATIVE: CASE EVENT DATE: 20150331
